FAERS Safety Report 24744065 (Version 2)
Quarter: 2024Q4

REPORT INFORMATION
  Report Type: Report from Study
  Country: CA (occurrence: CA)
  Receive Date: 20241217
  Receipt Date: 20241227
  Transmission Date: 20250114
  Serious: No
  Sender: LUNDBECK
  Company Number: CA-LUNDBECK-DKLU4008116

PATIENT

DRUGS (10)
  1. VYEPTI [Suspect]
     Active Substance: EPTINEZUMAB-JJMR
     Indication: Migraine
     Dosage: 300 MILLIGRAM
     Route: 041
     Dates: start: 20240917
  2. BOTOX [Concomitant]
     Active Substance: ONABOTULINUMTOXINA
     Indication: Product used for unknown indication
  3. APO-NADOLOL [Concomitant]
     Indication: Product used for unknown indication
     Dosage: 40 MILLIGRAM
  4. LEVETIRACETAM [Concomitant]
     Active Substance: LEVETIRACETAM
     Indication: Product used for unknown indication
     Dosage: 500 MILLIGRAM
  5. LEVETIRACETAM [Concomitant]
     Active Substance: LEVETIRACETAM
     Dosage: 500 MILLIGRAM
  6. ACETAMINOPHEN\TRAMADOL HYDROCHLORIDE [Concomitant]
     Active Substance: ACETAMINOPHEN\TRAMADOL HYDROCHLORIDE
     Indication: Product used for unknown indication
     Dosage: 2 DOSAGE FORM
  7. AURO LAMOTRIGINE [Concomitant]
     Indication: Product used for unknown indication
     Dosage: 2 DOSAGE FORM
  8. AURO LAMOTRIGINE [Concomitant]
     Dosage: 2 DOSAGE FORM
  9. AVENTYL [Concomitant]
     Active Substance: NORTRIPTYLINE HYDROCHLORIDE
     Indication: Product used for unknown indication
     Dosage: 4 DOSAGE FORM
  10. CHLORPROMAZINE [Concomitant]
     Active Substance: CHLORPROMAZINE
     Indication: Migraine prophylaxis

REACTIONS (1)
  - Drug ineffective [Not Recovered/Not Resolved]
